FAERS Safety Report 12636489 (Version 1)
Quarter: 2016Q3

REPORT INFORMATION
  Report Type: Spontaneous
  Country: PH (occurrence: PH)
  Receive Date: 20160809
  Receipt Date: 20160809
  Transmission Date: 20161109
  Serious: Yes (Other)
  Sender: FDA-Public Use
  Company Number: PH-009507513-1607PHL010414

PATIENT

DRUGS (1)
  1. KEYTRUDA [Suspect]
     Active Substance: PEMBROLIZUMAB
     Indication: MALIGNANT MELANOMA
     Dosage: 1ST CYCLE (UNSPECIFIED DATE); 2ND CYCLE (JULY 2016)

REACTIONS (2)
  - Tumour pseudoprogression [Recovering/Resolving]
  - Rash papular [Unknown]

NARRATIVE: CASE EVENT DATE: 2016
